FAERS Safety Report 7613808-6 (Version None)
Quarter: 2011Q3

REPORT INFORMATION
  Report Type: 
  Country: None (occurrence: None)
  Receive Date: 20110708
  Receipt Date: 20110627
  Transmission Date: 20111222
  Serious: Yes (Hospitalization)
  Sender: FDA-Public Use
  Company Number: 969021

PATIENT
  Age: 65 Year
  Sex: Female

DRUGS (6)
  1. SOLU-MEDROL [Concomitant]
  2. KETOROLAC TROMETHAMINE [Suspect]
     Indication: HEADACHE
     Dosage: 30 MG, INTRAVENOUS
     Route: 042
  3. EPINEPHRINE [Suspect]
     Indication: ALLERGY TO ARTHROPOD STING
     Dosage: 0.3 MG,, INTRAMUSCULAR
     Route: 030
  4. RANITIDINE [Concomitant]
  5. RIZATRIPTAN [Suspect]
     Indication: HEADACHE
     Dosage: 5 MG, ORAL
     Route: 048
  6. DIPHENHYDRAMINE HCL [Concomitant]

REACTIONS (2)
  - BLOOD PRESSURE INCREASED [None]
  - CEREBRAL HAEMORRHAGE [None]
